FAERS Safety Report 7683477-8 (Version None)
Quarter: 2011Q3

REPORT INFORMATION
  Report Type: 
  Country: None (occurrence: None)
  Receive Date: 20110812
  Receipt Date: 20110812
  Transmission Date: 20111222
  Serious: Yes (Hospitalization)
  Sender: FDA-Public Use
  Company Number: None

PATIENT
  Sex: Male
  Weight: 80 kg

DRUGS (6)
  1. DIAZEPAM [Concomitant]
  2. DILANTIN [Concomitant]
  3. CISPLATIN [Suspect]
     Dosage: 110 MG
     Dates: end: 20100303
  4. METOPROLOL [Concomitant]
  5. ETOPOSIDE [Suspect]
     Dosage: 450 MG
     Dates: end: 20100305
  6. VICODIN [Concomitant]

REACTIONS (6)
  - DELIRIUM [None]
  - FALL [None]
  - APHAGIA [None]
  - FATIGUE [None]
  - MENTAL STATUS CHANGES [None]
  - SEPSIS [None]
